FAERS Safety Report 26130424 (Version 2)
Quarter: 2025Q4

REPORT INFORMATION
  Report Type: Spontaneous
  Country: CH (occurrence: CH)
  Receive Date: 20251208
  Receipt Date: 20251219
  Transmission Date: 20260117
  Serious: Yes (Death, Life-Threatening, Other)
  Sender: BRISTOL-MYERS SQUIBB COMPANY
  Company Number: CH-IPSEN Group, Research and Development-2025-00575

PATIENT
  Age: 77 Year
  Sex: Female

DRUGS (5)
  1. NIVOLUMAB [Suspect]
     Active Substance: NIVOLUMAB
     Indication: Angiosarcoma metastatic
  2. CABOMETYX [Suspect]
     Active Substance: CABOZANTINIB S-MALATE
     Indication: Angiosarcoma metastatic
     Route: 048
     Dates: start: 20241011, end: 20241230
  3. CABOMETYX [Suspect]
     Active Substance: CABOZANTINIB S-MALATE
  4. LERCANIDIPINA [LERCANIDIPINE] [Concomitant]
     Indication: Product used for unknown indication
  5. EUTHYROX [Concomitant]
     Active Substance: LEVOTHYROXINE SODIUM
     Indication: Product used for unknown indication

REACTIONS (7)
  - Off label use [Unknown]
  - Sepsis [Fatal]
  - Large intestine perforation [Not Recovered/Not Resolved]
  - Gastrointestinal perforation [Unknown]
  - Ileus paralytic [Unknown]
  - Disseminated intravascular coagulation [Unknown]
  - Atrial fibrillation [Unknown]

NARRATIVE: CASE EVENT DATE: 20241011
